FAERS Safety Report 7283721-5 (Version None)
Quarter: 2011Q1

REPORT INFORMATION
  Report Type: 
  Country: None (occurrence: None)
  Receive Date: 20110209
  Receipt Date: 20110127
  Transmission Date: 20110831
  Serious: Yes (Hospitalization)
  Sender: FDA-Public Use
  Company Number: US-ELI_LILLY_AND_COMPANY-US200902002768

PATIENT
  Sex: Female
  Weight: 36.281 kg

DRUGS (7)
  1. METOPROLOL /00376901/ [Concomitant]
     Indication: HYPERTENSION
     Dosage: 25 MG, 2/D
     Route: 048
  2. SPIRIVA [Concomitant]
     Dosage: 18 UG, DAILY (1/D)
     Route: 055
  3. ALBUTEROL [Concomitant]
     Dosage: UNK, AS NEEDED
     Route: 055
  4. BETHANECHOL [Concomitant]
     Indication: NEUROGENIC BLADDER
     Dosage: 50 MG, 2/D
     Route: 048
  5. FORTEO [Concomitant]
     Dosage: 20 MG, DAILY (1/D)
     Route: 058
     Dates: start: 20070601
  6. FERREX /USA/ [Concomitant]
     Dosage: 150 MG, DAILY (1/D)
     Route: 048
  7. CYMBALTA [Suspect]
     Indication: DEPRESSION
     Dosage: 30 MG, DAILY (1/D)
     Route: 048
     Dates: start: 20090128, end: 20090131

REACTIONS (11)
  - NAUSEA [None]
  - SOMNOLENCE [None]
  - DEHYDRATION [None]
  - ABNORMAL BEHAVIOUR [None]
  - ASTHENIA [None]
  - DEPRESSED LEVEL OF CONSCIOUSNESS [None]
  - HEADACHE [None]
  - PYREXIA [None]
  - HYPOPHAGIA [None]
  - VOMITING [None]
  - NUTRITIONAL CONDITION ABNORMAL [None]
